FAERS Safety Report 10384339 (Version 1)
Quarter: 2014Q1

REPORT INFORMATION
  Report Type: Spontaneous
  Country: US (occurrence: None)
  Receive Date: 20140306
  Receipt Date: 20140306
  Transmission Date: 20141002
  Serious: Yes (Other)
  Sender: FDA-Public Use
  Company Number: 163-21880-13090726

PATIENT
  Age: 50 Year
  Sex: Male

DRUGS (1)
  1. REVLIMIB (LENALIDOMIDE) (15 MILLIGRAM, CAPSULES) [Suspect]
     Indication: PLASMA CELL MYELOMA
     Route: 048
     Dates: start: 201210

REACTIONS (7)
  - Feeling abnormal [None]
  - Insomnia [None]
  - Dizziness [None]
  - Pruritus [None]
  - Decreased appetite [None]
  - Fatigue [None]
  - Asthenia [None]
